FAERS Safety Report 17343979 (Version 1)
Quarter: 2020Q1

REPORT INFORMATION
  Report Type: Spontaneous
  Country: US (occurrence: US)
  Receive Date: 20200129
  Receipt Date: 20200129
  Transmission Date: 20200409
  Serious: No
  Sender: FDA-Public Use
  Company Number: US-ALLERGAN-1936339US

PATIENT
  Sex: Male

DRUGS (2)
  1. BOTOX COSMETIC [Suspect]
     Active Substance: ONABOTULINUMTOXINA
     Indication: SKIN WRINKLING
     Dosage: 16 UNITS, SINGLE, 2 PER SITE, 8 SITES 4 ON EACH SIDE
     Dates: start: 20190628, end: 20190628
  2. BOTOX COSMETIC [Suspect]
     Active Substance: ONABOTULINUMTOXINA
     Dosage: 12 UNITS, SINGLE, 4 PER SITE, 3 SITES
     Dates: start: 20190628, end: 20190628

REACTIONS (2)
  - Therapeutic response decreased [Unknown]
  - Multiple use of single-use product [Unknown]
